FAERS Safety Report 9304815 (Version 7)
Quarter: 2013Q4

REPORT INFORMATION
  Report Type: Report from Study
  Country: US (occurrence: US)
  Receive Date: 20130523
  Receipt Date: 20131101
  Transmission Date: 20140711
  Serious: Yes (Hospitalization)
  Sender: FDA-Public Use
  Company Number: US-PFIZER INC-2013071057

PATIENT
  Age: 48 Year
  Sex: Female
  Weight: 91.61 kg

DRUGS (1)
  1. TOFACITINIB CITRATE [Suspect]
     Indication: PSORIASIS
     Dosage: 2 TABLETS, 2X/DAY
     Route: 048
     Dates: start: 20120619, end: 20130306

REACTIONS (2)
  - Epiglottitis [Recovered/Resolved]
  - Staphylococcal infection [Recovered/Resolved]
